FAERS Safety Report 9081262 (Version 1)
Quarter: 2013Q1

REPORT INFORMATION
  Report Type: Report from Study
  Country: US (occurrence: US)
  Receive Date: 20130130
  Receipt Date: 20130130
  Transmission Date: 20140127
  Serious: No
  Sender: FDA-Public Use
  Company Number: US-ABBOTT-12P-163-0971115-00

PATIENT
  Sex: Female
  Weight: 52.21 kg

DRUGS (7)
  1. HUMIRA 40 MG/ 0.8 ML PRE-FILLED SYRINGE [Suspect]
     Indication: RHEUMATOID ARTHRITIS
     Dates: start: 2002, end: 2008
  2. PERCOCET [Concomitant]
     Indication: RHEUMATOID ARTHRITIS
     Dosage: 10/325MG 3 TIMES A DAY AS NEEDED
  3. OXYCONTIN [Concomitant]
     Indication: ARTHRALGIA
  4. SYNTHROID [Concomitant]
     Indication: GAMMA RADIATION THERAPY TO THYROID
  5. ATENOLOL [Concomitant]
     Indication: HYPERTENSION
  6. SOMA [Concomitant]
     Indication: MUSCLE SPASMS
  7. XANAX [Concomitant]
     Indication: ANXIETY

REACTIONS (2)
  - Rheumatoid arthritis [Not Recovered/Not Resolved]
  - Arthralgia [Not Recovered/Not Resolved]
